FAERS Safety Report 4530200-1 (Version None)
Quarter: 2004Q4

REPORT INFORMATION
  Report Type: 
  Country: None (occurrence: None)
  Receive Date: 20041217
  Receipt Date: 20041213
  Transmission Date: 20050328
  Serious: Yes (Death, Hospitalization)
  Sender: FDA-Public Use
  Company Number: 200419499US

PATIENT
  Sex: Female

DRUGS (6)
  1. LASIX [Suspect]
     Dosage: DOSE: UNK
     Dates: start: 20030801, end: 20030801
  2. UNKNOWN DRUG [Concomitant]
     Dosage: DOSE: UNK
  3. DIOVAN [Concomitant]
     Dosage: DOSE: UNK
  4. ASPIRIN [Concomitant]
     Dosage: DOSE: UNK
  5. PLAVIX [Concomitant]
     Dosage: DOSE: UNK
  6. SYNTHROID [Concomitant]
     Dosage: DOSE: UNK

REACTIONS (7)
  - ACUTE MYOCARDIAL INFARCTION [None]
  - ACUTE PULMONARY OEDEMA [None]
  - BLOOD PRESSURE INCREASED [None]
  - CARDIO-RESPIRATORY ARREST [None]
  - DIALYSIS [None]
  - METABOLIC ACIDOSIS [None]
  - PROCEDURAL COMPLICATION [None]
